FAERS Safety Report 5345442-5 (Version None)
Quarter: 2007Q2

REPORT INFORMATION
  Report Type: 
  Country: None (occurrence: None)
  Receive Date: 20070426
  Receipt Date: 20060505
  Transmission Date: 20071010
  Serious: Yes (Other)
  Sender: FDA-Public Use
  Company Number: US-JNJFOC-20060405724

PATIENT
  Age: 55 Year
  Sex: Male
  Weight: 86.1834 kg

DRUGS (1)
  1. ULTRAM [Suspect]
     Indication: PAIN
     Dosage: 100 MG, 1 IN 1 TOTAL, ORAL
     Route: 048
     Dates: start: 20050601, end: 20050601

REACTIONS (1)
  - ANAPHYLACTIC SHOCK [None]
